FAERS Safety Report 4627783-X (Version None)
Quarter: 2005Q2

REPORT INFORMATION
  Report Type: 
  Country: None (occurrence: None)
  Receive Date: 20050401
  Receipt Date: 20050401
  Transmission Date: 20051028
  Serious: Yes (Death)
  Sender: FDA-Public Use
  Company Number: None

PATIENT
  Age: 82 Year
  Sex: Male

DRUGS (3)
  1. COLISTIN SULFATE [Suspect]
     Indication: EMPYEMA
     Dosage: 150MG Q12-24HRS INTRAVENOUS
     Route: 042
     Dates: start: 20040220, end: 20040307
  2. COLISTIN SULFATE [Suspect]
     Indication: PSEUDOMONAS INFECTION
     Dosage: 150MG Q12-24HRS INTRAVENOUS
     Route: 042
     Dates: start: 20040220, end: 20040307
  3. AMIKACIN [Concomitant]

REACTIONS (1)
  - RENAL FAILURE ACUTE [None]
